FAERS Safety Report 10968950 (Version 1)
Quarter: 2015Q1

REPORT INFORMATION
  Report Type: Spontaneous
  Country: UG (occurrence: UG)
  Receive Date: 20150331
  Receipt Date: 20150331
  Transmission Date: 20150721
  Serious: Yes (Other)
  Sender: FDA-Public Use
  Company Number: UG-CIPLA LTD.-2015UG02486

PATIENT

DRUGS (5)
  1. ABACAVIR [Suspect]
     Active Substance: ABACAVIR
     Indication: HIV TEST POSITIVE
  2. LAMIVUDINE. [Suspect]
     Active Substance: LAMIVUDINE
     Indication: HIV TEST POSITIVE
     Dosage: UNK
  3. TENOFOVIR DISOPROXIL FUMARATE [Suspect]
     Active Substance: TENOFOVIR DISOPROXIL FUMARATE
     Indication: HIV TEST POSITIVE
     Dosage: UNK
  4. EFAVIRENZ [Suspect]
     Active Substance: EFAVIRENZ
     Indication: HIV TEST POSITIVE
     Dosage: UNK
  5. CIPROFLOXACIN. [Concomitant]
     Active Substance: CIPROFLOXACIN
     Indication: URINARY TRACT INFECTION
     Dosage: 500 MG, BID,

REACTIONS (4)
  - Urinary tract infection [Recovered/Resolved]
  - Protein urine [Recovered/Resolved]
  - Blood urine present [Recovered/Resolved]
  - White blood cells urine positive [Recovered/Resolved]
